FAERS Safety Report 7059782-5 (Version None)
Quarter: 2010Q4

REPORT INFORMATION
  Report Type: 
  Country: None (occurrence: None)
  Receive Date: 20101025
  Receipt Date: 20101013
  Transmission Date: 20110411
  Serious: Yes (Other)
  Sender: FDA-Public Use
  Company Number: US-PFIZER INC-2010107343

PATIENT
  Sex: Female
  Weight: 110 kg

DRUGS (15)
  1. GEODON [Suspect]
     Indication: BIPOLAR DISORDER
     Dosage: 80 MG, 2X/DAY
     Route: 048
     Dates: start: 20000101
  2. GEODON [Suspect]
     Dosage: 60 MG, 1X/DAY
  3. TRILEPTAL [Suspect]
     Indication: MENTAL DISORDER
     Dosage: 150MG EVERY AM;300MG AT HS
  4. EFFEXOR [Concomitant]
     Indication: MENTAL DISORDER
     Dosage: UNK
  5. SYNTHROID [Concomitant]
     Dosage: UNK
  6. POTASSIUM [Concomitant]
     Dosage: UNK
  7. LASIX [Concomitant]
     Dosage: UNK
  8. SENOKOT [Concomitant]
     Dosage: UNK
  9. COLACE [Concomitant]
     Dosage: UNK
  10. LACTULOSE [Concomitant]
     Dosage: UNK
  11. AMITIZA [Concomitant]
     Dosage: UNK
  12. PRAVASTATIN [Concomitant]
     Indication: BLOOD CHOLESTEROL INCREASED
     Dosage: UNK
  13. CALCIUM [Concomitant]
     Dosage: UNK
  14. VITAMIN D [Concomitant]
     Dosage: UNK
  15. FISH OIL [Concomitant]
     Dosage: UNK

REACTIONS (4)
  - AMNESIA [None]
  - CONSTIPATION [None]
  - MANIA [None]
  - WEIGHT INCREASED [None]
